FAERS Safety Report 16239755 (Version 2)
Quarter: 2019Q2

REPORT INFORMATION
  Report Type: Spontaneous
  Country: KR (occurrence: KR)
  Receive Date: 20190425
  Receipt Date: 20190616
  Transmission Date: 20190711
  Serious: Yes (Other)
  Sender: FDA-Public Use
  Company Number: KR-UCBSA-2019016716

PATIENT

DRUGS (2)
  1. LEVETIRACETAM. [Suspect]
     Active Substance: LEVETIRACETAM
     Indication: EPILEPSY
     Dosage: 250 MILLIGRAM, 2X/DAY (BID)
  2. LEVETIRACETAM. [Suspect]
     Active Substance: LEVETIRACETAM
     Dosage: DOSE REGIMENS WERE ADJUSTED BASED ON THE CLINICAL JUDGMENT

REACTIONS (13)
  - Nervous system disorder [Unknown]
  - Language disorder [Unknown]
  - Hostility [Unknown]
  - Depression [Unknown]
  - Visual impairment [Unknown]
  - Rash [Unknown]
  - Gastrointestinal disorder [Unknown]
  - Memory impairment [Unknown]
  - Pain [Unknown]
  - Anxiety [Unknown]
  - Headache [Unknown]
  - Nervousness [Unknown]
  - Irritability [Unknown]
